FAERS Safety Report 6463982-2 (Version None)
Quarter: 2009Q4

REPORT INFORMATION
  Report Type: 
  Country: None (occurrence: None)
  Receive Date: 20091201
  Receipt Date: 20091117
  Transmission Date: 20100525
  Serious: Yes (Other)
  Sender: FDA-Public Use
  Company Number: GB-JNJFOC-20091105121

PATIENT
  Age: 32 Year
  Sex: Female

DRUGS (1)
  1. KETOCONAZOLE [Suspect]
     Indication: TINEA VERSICOLOUR
     Dates: start: 20090814, end: 20090816

REACTIONS (6)
  - BURNING SENSATION [None]
  - DRY SKIN [None]
  - ERYTHEMA [None]
  - HYPERSENSITIVITY [None]
  - INFECTION [None]
  - PRURITUS [None]
